FAERS Safety Report 10141293 (Version 2)
Quarter: 2014Q4

REPORT INFORMATION
  Report Type: Spontaneous
  Country: US (occurrence: US)
  Receive Date: 20140429
  Receipt Date: 20141001
  Transmission Date: 20150528
  Serious: No
  Sender: FDA-Public Use
  Company Number: US-GILEAD-2014-0100818

PATIENT
  Age: 39 Year
  Sex: Female

DRUGS (13)
  1. CARDIZEM                           /00489702/ [Concomitant]
  2. LETAIRIS [Suspect]
     Active Substance: AMBRISENTAN
     Indication: PULMONARY HYPERTENSION
     Route: 065
     Dates: start: 20130823, end: 20131228
  3. MIDODRINE [Concomitant]
     Active Substance: MIDODRINE
  4. ADCIRCA [Concomitant]
     Active Substance: TADALAFIL
  5. REMODULIN [Concomitant]
     Active Substance: TREPROSTINIL
  6. COUMADIN [Concomitant]
     Active Substance: WARFARIN SODIUM
  7. VALIUM [Concomitant]
     Active Substance: DIAZEPAM
  8. PLAVIX [Concomitant]
     Active Substance: CLOPIDOGREL BISULFATE
  9. METOPROLOL                         /00376902/ [Concomitant]
     Active Substance: METOPROLOL
  10. PAXIL [Concomitant]
     Active Substance: PAROXETINE HYDROCHLORIDE
  11. VITAMIN E                          /00110501/ [Concomitant]
  12. NORCO [Concomitant]
     Active Substance: ACETAMINOPHEN\HYDROCODONE BITARTRATE
  13. ZOFRAN                             /00955302/ [Concomitant]

REACTIONS (1)
  - Hypotension [Recovered/Resolved]

NARRATIVE: CASE EVENT DATE: 20131228
